FAERS Safety Report 4573232-X (Version None)
Quarter: 2005Q1

REPORT INFORMATION
  Report Type: 
  Country: None (occurrence: None)
  Receive Date: 20050208
  Receipt Date: 20040729
  Transmission Date: 20050727
  Serious: No
  Sender: FDA-Public Use
  Company Number: US-GLAXOSMITHKLINE-A0520290A

PATIENT
  Age: 9 Year
  Sex: Male

DRUGS (4)
  1. PAXIL [Suspect]
     Indication: IRRITABILITY
     Dosage: 5MG ALTERNATE DAYS
     Route: 048
     Dates: start: 20040601
  2. TEGRETOL [Concomitant]
  3. RISPERDAL [Concomitant]
  4. ADDERALL [Concomitant]

REACTIONS (1)
  - DYSKINESIA [None]
